FAERS Safety Report 6870901-3 (Version None)
Quarter: 2010Q3

REPORT INFORMATION
  Report Type: 
  Country: None (occurrence: None)
  Receive Date: 20100723
  Receipt Date: 20100716
  Transmission Date: 20110219
  Serious: Yes (Other)
  Sender: FDA-Public Use
  Company Number: JP-B.I. PHARMACEUTICALS,INC./RIDGEFIELD-2010-BP-08029NB

PATIENT
  Age: 64 Year
  Sex: Male

DRUGS (4)
  1. MOBIC [Suspect]
     Indication: RHEUMATOID ARTHRITIS
     Dosage: 10 MG
     Route: 048
     Dates: start: 20091216, end: 20100328
  2. RIMATIL [Suspect]
     Dosage: 200 MG
     Route: 048
  3. GASLON N_OD [Concomitant]
     Dosage: 4 MG
     Route: 048
  4. YAKUBAN [Concomitant]
     Dosage: 60 MG
     Route: 061

REACTIONS (1)
  - INTERSTITIAL LUNG DISEASE [None]
